FAERS Safety Report 23358207 (Version 1)
Quarter: 2024Q1

REPORT INFORMATION
  Report Type: Spontaneous
  Country: TR (occurrence: TR)
  Receive Date: 20240102
  Receipt Date: 20240102
  Transmission Date: 20240409
  Serious: Yes (Death, Other)
  Sender: FDA-Public Use
  Company Number: TR-ABBVIE-5568241

PATIENT
  Age: 61 Year
  Sex: Female

DRUGS (1)
  1. VENETOCLAX [Suspect]
     Active Substance: VENETOCLAX
     Indication: Acute myeloid leukaemia
     Route: 048

REACTIONS (4)
  - Death [Fatal]
  - Bone marrow transplant [Unknown]
  - Complications of bone marrow transplant [Unknown]
  - Acute myeloid leukaemia recurrent [Unknown]
